FAERS Safety Report 10058099 (Version 1)
Quarter: 2014Q2

REPORT INFORMATION
  Report Type: Spontaneous
  Country: US (occurrence: None)
  Receive Date: 20140403
  Receipt Date: 20140403
  Transmission Date: 20141212
  Serious: Yes (Disabling)
  Sender: FDA-Public Use
  Company Number: None

PATIENT
  Age: 40 Year
  Sex: Female
  Weight: 57.61 kg

DRUGS (2)
  1. XARELTO [Suspect]
     Indication: THROMBOSIS
     Route: 048
     Dates: start: 20140310, end: 20140317
  2. XARELTO [Suspect]
     Indication: POSTOPERATIVE THROMBOSIS
     Route: 048
     Dates: start: 20140310, end: 20140317

REACTIONS (3)
  - Weight increased [None]
  - Fatigue [None]
  - Feeling abnormal [None]
